FAERS Safety Report 14193934 (Version 1)
Quarter: 2017Q4

REPORT INFORMATION
  Report Type: Spontaneous
  Country: IN (occurrence: IN)
  Receive Date: 20171116
  Receipt Date: 20171116
  Transmission Date: 20180321
  Serious: Yes (Disabling)
  Sender: FDA-Public Use
  Company Number: IN-ACCORD-060930

PATIENT
  Age: 52 Year
  Sex: Female

DRUGS (2)
  1. CLOZAPINE. [Suspect]
     Active Substance: CLOZAPINE
     Indication: SCHIZOPHRENIA
     Dosage: INCREASED FROM 50 MG TO 200 MG/D OVER 6 MONTHS
  2. QUETIAPINE. [Suspect]
     Active Substance: QUETIAPINE
     Indication: SCHIZOPHRENIA
     Dosage: FOR 1 YEAR

REACTIONS (2)
  - Drug effect incomplete [Unknown]
  - Pleurothotonus [Unknown]
